FAERS Safety Report 7482236-9 (Version None)
Quarter: 2011Q2

REPORT INFORMATION
  Report Type: 
  Country: None (occurrence: None)
  Receive Date: 20110516
  Receipt Date: 20110509
  Transmission Date: 20111010
  Serious: No
  Sender: FDA-Public Use
  Company Number: US-PFIZER INC-2010072374

PATIENT
  Sex: Female
  Weight: 79.4 kg

DRUGS (7)
  1. FUROSEMIDE [Concomitant]
     Dosage: UNK
  2. GLIPIZIDE [Concomitant]
     Dosage: UNK
  3. REMODULIN [Suspect]
     Indication: PULMONARY HYPERTENSION
     Dosage: UNK
  4. METFORMIN [Concomitant]
     Dosage: UNK
  5. WARFARIN [Concomitant]
     Dosage: UNK
  6. REVATIO [Suspect]
     Indication: PULMONARY HYPERTENSION
     Dosage: UNK,  THREE TIMES A DAY
     Route: 048
     Dates: start: 20100602
  7. SPIRONOLACTONE [Concomitant]
     Dosage: UNK

REACTIONS (2)
  - DIARRHOEA [None]
  - MALAISE [None]
